FAERS Safety Report 9980749 (Version 1)
Quarter: 2014Q1

REPORT INFORMATION
  Report Type: Report from Study
  Country: IT (occurrence: IT)
  Receive Date: 20140307
  Receipt Date: 20140307
  Transmission Date: 20141002
  Serious: Yes (Other)
  Sender: FDA-Public Use
  Company Number: IT-ROCHE-1361376

PATIENT
  Sex: Female

DRUGS (4)
  1. CAPECITABINE [Suspect]
     Indication: BREAST CANCER
     Dosage: FOR PHASE I (LEVEL 1, 2, 3) AND PHASE II
     Route: 048
  2. VINORELBINE [Suspect]
     Indication: BREAST CANCER
     Dosage: LEVEL 1 FOR 3 CONSECUTIVE WEEKS (1 CYCLE)
     Route: 048
  3. VINORELBINE [Suspect]
     Dosage: LEVEL 2 : FOR 3 WEEKS (1-3-5)
     Route: 065
  4. VINORELBINE [Suspect]
     Dosage: LEVEL 3 AND PHASE 2 : FOR 3 WEEKS (1-3-5)
     Route: 065

REACTIONS (7)
  - Leukopenia [Unknown]
  - Febrile neutropenia [Unknown]
  - Neutropenia [Unknown]
  - Thrombocytopenia [Unknown]
  - Neuropathy peripheral [Unknown]
  - Palmar-plantar erythrodysaesthesia syndrome [Unknown]
  - Gamma-glutamyltransferase increased [Unknown]
